FAERS Safety Report 20124627 (Version 1)
Quarter: 2021Q4

REPORT INFORMATION
  Report Type: Spontaneous
  Country: LU (occurrence: LU)
  Receive Date: 20211129
  Receipt Date: 20211129
  Transmission Date: 20220304
  Serious: Yes (Other)
  Sender: FDA-Public Use
  Company Number: None

PATIENT
  Age: 50 Year
  Sex: Female
  Weight: 61.4 kg

DRUGS (5)
  1. PACLITAXEL [Suspect]
     Active Substance: PACLITAXEL
     Indication: Ovarian cancer
     Dosage: 131.65 MG
     Route: 041
     Dates: start: 20211029, end: 20211029
  2. POLARAMINE [Concomitant]
     Active Substance: DEXCHLORPHENIRAMINE MALEATE
     Indication: Premedication
     Dosage: 5 MG
     Route: 042
     Dates: start: 20211029, end: 20211029
  3. DEXAMETHASONE [Concomitant]
     Active Substance: DEXAMETHASONE
     Indication: Prophylaxis of nausea and vomiting
     Dosage: 8 MG
     Route: 042
     Dates: start: 20211029, end: 20211029
  4. Ondansetron BBRAUN [Concomitant]
     Indication: Prophylaxis of nausea and vomiting
     Dosage: 8 MG
     Route: 042
     Dates: start: 20211029, end: 20211029
  5. TAGAMET [Concomitant]
     Active Substance: CIMETIDINE
     Indication: Premedication
     Dosage: 400 MG
     Route: 048
     Dates: start: 20211029, end: 20211029

REACTIONS (4)
  - Hypoxia [Recovering/Resolving]
  - Hypotension [Recovering/Resolving]
  - Infusion related reaction [Recovering/Resolving]
  - Nausea [Recovering/Resolving]

NARRATIVE: CASE EVENT DATE: 20211029
